FAERS Safety Report 4390445-0 (Version None)
Quarter: 2004Q2

REPORT INFORMATION
  Report Type: 
  Country: None (occurrence: None)
  Receive Date: 20040630
  Receipt Date: 20040624
  Transmission Date: 20050107
  Serious: Yes (Death, Life-Threatening, Hospitalization)
  Sender: FDA-Public Use
  Company Number: HQWYE697525JUN04

PATIENT
  Age: 70 Year
  Sex: Female
  Weight: 63.9 kg

DRUGS (4)
  1. MYLOTARG [Suspect]
     Indication: ACUTE MYELOID LEUKAEMIA
     Dosage: SEE IMAGE
     Route: 042
     Dates: start: 20030317, end: 20030317
  2. MYLOTARG [Suspect]
     Indication: ACUTE MYELOID LEUKAEMIA
     Dosage: SEE IMAGE
     Route: 042
     Dates: start: 20030328, end: 20030328
  3. GLUCOTROL [Concomitant]
  4. IMMUNE SERUM GLOBULIN (HUMAN) (IMMUNE SERUM GLOBULIN (HUMAN)) [Concomitant]

REACTIONS (3)
  - BACTERIAL SEPSIS [None]
  - FEBRILE NEUTROPENIA [None]
  - STAPHYLOCOCCAL BACTERAEMIA [None]
